FAERS Safety Report 6853032-8 (Version None)
Quarter: 2010Q3

REPORT INFORMATION
  Report Type: 
  Country: None (occurrence: None)
  Receive Date: 20100717
  Receipt Date: 20071128
  Transmission Date: 20110219
  Serious: No
  Sender: FDA-Public Use
  Company Number: US-PFIZER INC-2007102159

PATIENT
  Sex: Female
  Weight: 104.5 kg

DRUGS (3)
  1. CHANTIX [Suspect]
     Indication: SMOKING CESSATION THERAPY
     Route: 048
     Dates: start: 20071001
  2. NEXIUM [Concomitant]
     Indication: GASTROOESOPHAGEAL REFLUX DISEASE
  3. PRINZIDE [Concomitant]
     Indication: HYPERTENSION

REACTIONS (3)
  - APATHY [None]
  - INCREASED APPETITE [None]
  - WEIGHT INCREASED [None]
